FAERS Safety Report 7361857-8 (Version None)
Quarter: 2011Q1

REPORT INFORMATION
  Report Type: 
  Country: None (occurrence: None)
  Receive Date: 20110318
  Receipt Date: 20100927
  Transmission Date: 20110831
  Serious: Yes (Hospitalization, Other)
  Sender: FDA-Public Use
  Company Number: US-BAYER-200935880NA

PATIENT
  Sex: Female
  Weight: 52.154 kg

DRUGS (10)
  1. ROBAXIN [Concomitant]
     Indication: HYPOTONIA
     Dosage: 500 MG, UNK
     Route: 048
  2. YAZ [Suspect]
     Indication: ACNE
  3. YASMIN [Suspect]
     Indication: ACNE
     Dosage: 1 DF (DAILY DOSE), QD, ORAL
     Route: 048
     Dates: start: 20020101, end: 20040101
  4. ESGIC [Concomitant]
     Indication: MIGRAINE
  5. COUMADIN [Concomitant]
  6. ADVIL LIQUI-GELS [Concomitant]
  7. ADVAIR DISKUS 100/50 [Concomitant]
  8. DEPO-PROVERA [Concomitant]
     Dosage: UNK
     Dates: start: 20080416, end: 20090207
  9. YASMIN [Suspect]
     Indication: CONTRACEPTION
  10. ALBUTEROL [Concomitant]

REACTIONS (3)
  - DEEP VEIN THROMBOSIS [None]
  - THROMBOSIS [None]
  - PULMONARY EMBOLISM [None]
